FAERS Safety Report 9144126 (Version 2)
Quarter: 2013Q1

REPORT INFORMATION
  Report Type: Spontaneous
  Country: GB (occurrence: GB)
  Receive Date: 20130306
  Receipt Date: 20130314
  Transmission Date: 20140127
  Serious: Yes (Congenital Anomaly, Other)
  Sender: FDA-Public Use
  Company Number: GB-WATSON-2013-03613

PATIENT
  Sex: Female

DRUGS (6)
  1. DIAZEPAM [Suspect]
     Indication: PRODUCT USED FOR UNKNOWN INDICATION
     Dosage: DOSE NOT STATED
     Route: 064
  2. HALOPERIDOL LACTATE [Suspect]
     Indication: PRODUCT USED FOR UNKNOWN INDICATION
     Dosage: DOSE NOT STATED
     Route: 064
  3. DROLEPTAN [Suspect]
     Indication: PRODUCT USED FOR UNKNOWN INDICATION
     Dosage: DOSE NOT STATED
     Route: 064
  4. DEPIXOL [Suspect]
     Indication: PRODUCT USED FOR UNKNOWN INDICATION
     Dosage: DOSE NOT STATED
     Route: 065
  5. VALIUM                             /00017001/ [Suspect]
     Indication: PRODUCT USED FOR UNKNOWN INDICATION
     Dosage: DOSE NOT STATED
     Route: 065
  6. SPARINE [Suspect]
     Indication: PRODUCT USED FOR UNKNOWN INDICATION
     Dosage: DOSE NOT STATED
     Route: 065

REACTIONS (3)
  - Pierre Robin syndrome [Unknown]
  - Cleft palate [Unknown]
  - Maternal exposure before pregnancy [Unknown]
